FAERS Safety Report 21477488 (Version 2)
Quarter: 2022Q4

REPORT INFORMATION
  Report Type: Spontaneous
  Country: JP (occurrence: JP)
  Receive Date: 20221019
  Receipt Date: 20221120
  Transmission Date: 20230113
  Serious: Yes (Death)
  Sender: FDA-Public Use
  Company Number: JP-NOVARTISPH-NVSJ2022JP099479

PATIENT
  Age: 37 Year

DRUGS (1)
  1. CANAKINUMAB [Suspect]
     Active Substance: CANAKINUMAB
     Indication: Cryopyrin associated periodic syndrome
     Dosage: 450MG/6W
     Route: 065

REACTIONS (3)
  - Amyloidosis [Fatal]
  - Condition aggravated [Fatal]
  - Sepsis [Fatal]
